FAERS Safety Report 7789505-3 (Version None)
Quarter: 2011Q3

REPORT INFORMATION
  Report Type: 
  Country: None (occurrence: None)
  Receive Date: 20110930
  Receipt Date: 20110922
  Transmission Date: 20111222
  Serious: Yes (Other)
  Sender: FDA-Public Use
  Company Number: ES-CUBIST-2011S1000628

PATIENT
  Age: 83 Year
  Sex: Male

DRUGS (4)
  1. CUBICIN [Suspect]
     Route: 065
     Dates: start: 20101001
  2. CUBICIN [Suspect]
     Route: 065
     Dates: start: 20100914
  3. CUBICIN [Suspect]
     Route: 065
     Dates: start: 20101007, end: 20101028
  4. CUBICIN [Suspect]
     Indication: ENDOCARDITIS
     Route: 065
     Dates: start: 20100901

REACTIONS (1)
  - PNEUMONITIS [None]
